FAERS Safety Report 17839148 (Version 3)
Quarter: 2020Q4

REPORT INFORMATION
  Report Type: Report from Study
  Country: TR (occurrence: TR)
  Receive Date: 20200529
  Receipt Date: 20201030
  Transmission Date: 20210113
  Serious: Yes (Other)
  Sender: FDA-Public Use
  Company Number: TR-AEGERION PHARMACEUTICAL, INC-AEGR004834

PATIENT

DRUGS (15)
  1. POTASSIUM BICARBONATE W/POTASSIUM CITRATE [Concomitant]
     Active Substance: POTASSIUM BICARBONATE\POTASSIUM CITRATE
     Indication: HYPOKALAEMIA
     Dosage: 2,17G, 2G 2X1
     Route: 048
  2. VITAMINE D [Concomitant]
     Active Substance: CHOLECALCIFEROL
     Indication: VITAMIN D DEFICIENCY
     Dosage: 50000 UNITS, 1X1 WEEKLY
     Dates: start: 20200422
  3. INSULIN ASPART [Concomitant]
     Active Substance: INSULIN ASPART
     Indication: HYPERGLYCAEMIA
     Dosage: 27 UNITS, QD
     Dates: start: 20200422
  4. ESCITALOPRAM [Concomitant]
     Active Substance: ESCITALOPRAM OXALATE
     Indication: DEPRESSION
     Dosage: 15 MG, QD
     Route: 048
  5. GEMFIBROZIL. [Concomitant]
     Active Substance: GEMFIBROZIL
     Indication: HYPERTRIGLYCERIDAEMIA
     Dosage: 600 MG, BID
     Dates: start: 20200422
  6. INSULIN ASPART [Concomitant]
     Active Substance: INSULIN ASPART
     Dosage: 24 UNITS, QD
     Dates: start: 20200422
  7. INSULIN ASPART [Concomitant]
     Active Substance: INSULIN ASPART
     Dosage: 25 UNITS, QD
     Dates: start: 20200422
  8. VERAPAMIL HYDROCHLOIRDE [Concomitant]
     Active Substance: VERAPAMIL HYDROCHLORIDE
     Indication: SUPRAVENTRICULAR TACHYCARDIA
     Dosage: 120 MG, QOD
     Route: 048
  9. FENOFIBRATE. [Concomitant]
     Active Substance: FENOFIBRATE
     Indication: HYPERTRIGLYCERIDAEMIA
     Dosage: 267 MG, QD
     Route: 048
     Dates: start: 20200205, end: 20200422
  10. MYALEPT [Suspect]
     Active Substance: METRELEPTIN
     Indication: CONGENITAL GENERALISED LIPODYSTROPHY
     Dosage: 5 MG, QOD
     Route: 058
     Dates: start: 20190722, end: 20200501
  11. FLECAINIDE ACETATE. [Concomitant]
     Active Substance: FLECAINIDE ACETATE
     Indication: SUPRAVENTRICULAR TACHYCARDIA
     Dosage: 100 MG, QD
     Route: 048
  12. INSULIN DETEMIR [Concomitant]
     Active Substance: INSULIN DETEMIR
     Indication: HYPERGLYCAEMIA
     Dosage: 40 UNITS, QD
     Dates: start: 20200422
  13. MYALEPT [Suspect]
     Active Substance: METRELEPTIN
     Dosage: 5 MG, QD
     Route: 058
  14. PROPRANOLOL HYDROCHLORIDE. [Concomitant]
     Active Substance: PROPRANOLOL HYDROCHLORIDE
     Indication: SUPRAVENTRICULAR TACHYCARDIA
     Dosage: 40 MG, QID
     Route: 048
  15. METFORMIN [Concomitant]
     Active Substance: METFORMIN HYDROCHLORIDE
     Indication: INSULIN RESISTANCE
     Dosage: 1000 MG, BID
     Dates: start: 20200422

REACTIONS (10)
  - Steatohepatitis [Unknown]
  - Blood glucose increased [Unknown]
  - Condition aggravated [Unknown]
  - Insulin resistance [Unknown]
  - Neutralising antibodies positive [Unknown]
  - Drug ineffective [Not Recovered/Not Resolved]
  - Metabolic disorder [Unknown]
  - Diabetes mellitus [Unknown]
  - Blood triglycerides increased [Unknown]
  - Hyperphagia [Unknown]

NARRATIVE: CASE EVENT DATE: 202002
